FAERS Safety Report 7006448-3 (Version None)
Quarter: 2010Q3

REPORT INFORMATION
  Report Type: 
  Country: None (occurrence: None)
  Receive Date: 20100921
  Receipt Date: 20100916
  Transmission Date: 20110219
  Serious: Yes (Hospitalization)
  Sender: FDA-Public Use
  Company Number: FR-MERCK-1009FRA00072

PATIENT
  Age: 65 Year
  Sex: Male

DRUGS (5)
  1. JANUVIA [Suspect]
     Indication: TYPE 2 DIABETES MELLITUS
     Route: 048
     Dates: start: 20100730, end: 20100916
  2. FOLIC ACID [Concomitant]
     Route: 048
  3. GABAPENTIN [Concomitant]
     Route: 048
  4. GLIMEPIRIDE [Concomitant]
     Route: 048
     Dates: end: 20100902
  5. CEFTAZIDIME [Concomitant]
     Indication: URINARY TRACT INFECTION
     Route: 051
     Dates: start: 20100821, end: 20100903

REACTIONS (2)
  - BLOOD CREATININE INCREASED [None]
  - PYURIA [None]
